FAERS Safety Report 20160560 (Version 1)
Quarter: 2021Q4

REPORT INFORMATION
  Report Type: Spontaneous
  Country: JP (occurrence: JP)
  Receive Date: 20211208
  Receipt Date: 20211208
  Transmission Date: 20220303
  Serious: Yes (Death, Life-Threatening, Hospitalization, Other)
  Sender: FDA-Public Use
  Company Number: JP-MACLEODS PHARMACEUTICALS US LTD-MAC2021033617

PATIENT

DRUGS (1)
  1. CLOPIDOGREL [Suspect]
     Active Substance: CLOPIDOGREL BISULFATE
     Indication: Antiplatelet therapy
     Dosage: UNK, CLOPIDOGREL HYDROGEN SULFATE
     Route: 048

REACTIONS (11)
  - Subdural haematoma [Fatal]
  - Coma [Fatal]
  - Arterial rupture [Fatal]
  - Pulmonary oedema [Fatal]
  - Brain injury [Fatal]
  - Brain herniation [Fatal]
  - Brain oedema [Fatal]
  - Fibrosis [Fatal]
  - Cardiomegaly [Fatal]
  - Subdural haematoma [Fatal]
  - Haemorrhage subcutaneous [Fatal]
